FAERS Safety Report 4714359-9 (Version None)
Quarter: 2005Q3

REPORT INFORMATION
  Report Type: 
  Country: None (occurrence: None)
  Receive Date: 20050714
  Receipt Date: 20050427
  Transmission Date: 20060218
  Serious: Yes (Hospitalization)
  Sender: FDA-Public Use
  Company Number: AU-ROCHE-402948

PATIENT
  Age: 43 Year
  Sex: Female
  Weight: 55 kg

DRUGS (11)
  1. PEG-INTERFERON ALFA 2A (RO 25-8310) [Suspect]
     Route: 058
     Dates: start: 20011029, end: 20011216
  2. PEG-INTERFERON ALFA 2A (RO 25-8310) [Suspect]
     Route: 058
     Dates: start: 20011231, end: 20020106
  3. PEG-INTERFERON ALFA 2A (RO 25-8310) [Suspect]
     Route: 058
     Dates: start: 20020113, end: 20020124
  4. PEG-INTERFERON ALFA 2A (RO 25-8310) [Suspect]
     Route: 058
     Dates: start: 20020125, end: 20020131
  5. PEG-INTERFERON ALFA 2A (RO 25-8310) [Suspect]
     Route: 058
     Dates: start: 20020201, end: 20020220
  6. PEG-INTERFERON ALFA 2A (RO 25-8310) [Suspect]
     Route: 058
     Dates: end: 20020615
  7. PEG-INTERFERON ALFA 2A (RO 25-8310) [Suspect]
     Route: 058
     Dates: start: 20020622
  8. RIBAVIRIN [Suspect]
     Route: 048
     Dates: start: 20011029, end: 20020228
  9. RIBAVIRIN [Suspect]
     Route: 048
     Dates: start: 20020301, end: 20020405
  10. RIBAVIRIN [Suspect]
     Route: 048
  11. CIPRAMIL [Concomitant]

REACTIONS (6)
  - CELLULITIS [None]
  - HEADACHE [None]
  - NEUTROPENIA [None]
  - OLIGOMENORRHOEA [None]
  - THERAPY NON-RESPONDER [None]
  - THROMBOCYTOPENIA [None]
